FAERS Safety Report 6416684-2 (Version None)
Quarter: 2009Q4

REPORT INFORMATION
  Report Type: 
  Country: None (occurrence: None)
  Receive Date: 20091027
  Receipt Date: 20091016
  Transmission Date: 20100525
  Serious: Yes (Other)
  Sender: FDA-Public Use
  Company Number: IE-WYE-H11438409

PATIENT
  Sex: Female

DRUGS (15)
  1. PROTIUM [Suspect]
     Indication: REFLUX OESOPHAGITIS
     Route: 048
     Dates: start: 20010606, end: 20090824
  2. EMCOR [Concomitant]
     Dosage: UNKNOWN
  3. PLAVIX [Concomitant]
     Dosage: UNKNOWN
  4. MIRTAZAPINE [Concomitant]
     Dosage: UNKNOWN
  5. LIPITOR [Concomitant]
     Dosage: UNKNOWN
  6. ZOPICLONE [Concomitant]
     Dosage: UNKNOWN
  7. GLUCOSAMINE HYDROCHLORIDE [Concomitant]
     Dosage: UNKNOWN
  8. CRESTOR [Concomitant]
     Dosage: UNKNOWN
  9. PARACETAMOL [Concomitant]
     Dosage: UNKNOWN
  10. FERROGRAD [Concomitant]
     Dosage: UNKNOWN
  11. ARTHROTEC [Concomitant]
     Dosage: UNKNOWN
  12. COZAAR [Concomitant]
     Dosage: UNKNOWN
  13. VIOXX [Concomitant]
     Dosage: UNKNOWN
  14. NU-SEALS ASPIRIN [Concomitant]
     Dosage: UNKNOWN
  15. ISTIN [Concomitant]
     Dosage: UNKNOWN

REACTIONS (1)
  - BURNING SENSATION [None]
